FAERS Safety Report 8450526-9 (Version None)
Quarter: 2012Q2

REPORT INFORMATION
  Report Type: 
  Country: None (occurrence: None)
  Receive Date: 20120620
  Receipt Date: 20120605
  Transmission Date: 20120825
  Serious: Yes (Hospitalization)
  Sender: FDA-Public Use
  Company Number: FR-BRISTOL-MYERS SQUIBB COMPANY-16670838

PATIENT
  Age: 70 Year
  Sex: Female

DRUGS (6)
  1. METFORMIN HCL [Suspect]
     Dosage: TAB
     Dates: end: 20120315
  2. AMOXICILLIN [Suspect]
     Indication: BRONCHIAL OBSTRUCTION
     Route: 048
     Dates: start: 20120309, end: 20120315
  3. LANTUS [Concomitant]
  4. ACETAMINOPHEN [Suspect]
     Dates: start: 20120309, end: 20120315
  5. TOPLEXIL [Suspect]
     Indication: BRONCHIAL OBSTRUCTION
     Dates: start: 20120309, end: 20120315
  6. NIFLURIL [Suspect]
     Indication: BRONCHITIS
     Route: 048
     Dates: start: 20120309, end: 20120315

REACTIONS (6)
  - RENAL FAILURE ACUTE [None]
  - LACTIC ACIDOSIS [None]
  - HYPOGLYCAEMIA [None]
  - BRONCHITIS [None]
  - VOMITING [None]
  - DECREASED APPETITE [None]
